FAERS Safety Report 20206114 (Version 1)
Quarter: 2021Q4

REPORT INFORMATION
  Report Type: Spontaneous
  Country: US (occurrence: US)
  Receive Date: 20211220
  Receipt Date: 20211220
  Transmission Date: 20220303
  Serious: Yes (Death, Hospitalization, Other)
  Sender: FDA-Public Use
  Company Number: US-ViiV Healthcare Limited-US2019GSK200246

PATIENT
  Age: 33 Year
  Sex: Male

DRUGS (6)
  1. DESCOVY [Suspect]
     Active Substance: EMTRICITABINE\TENOFOVIR ALAFENAMIDE FUMARATE
     Indication: HIV infection
     Route: 065
  2. DOLUTEGRAVIR [Suspect]
     Active Substance: DOLUTEGRAVIR
     Indication: HIV infection
     Dosage: UNK
     Route: 065
  3. AZITHROMYCIN [Concomitant]
     Active Substance: AZITHROMYCIN
     Indication: Opportunistic infection prophylaxis
     Dosage: UNK
  4. MARAVIROC [Concomitant]
     Active Substance: MARAVIROC
     Indication: Immunomodulatory therapy
     Dosage: UNK
  5. CLONAZEPAM [Concomitant]
     Active Substance: CLONAZEPAM
     Indication: Neuritis
     Dosage: UNK
  6. SULFAMETHOXAZOLE\TRIMETHOPRIM [Concomitant]
     Active Substance: SULFAMETHOXAZOLE\TRIMETHOPRIM
     Indication: Opportunistic infection prophylaxis
     Dosage: UNK

REACTIONS (21)
  - Quadriplegia [Fatal]
  - Visual acuity reduced [Fatal]
  - Myelopathy [Fatal]
  - Herpes simplex [Fatal]
  - Lung abscess [Fatal]
  - Pyrexia [Fatal]
  - Pneumonia [Fatal]
  - Neurological symptom [Fatal]
  - Oral candidiasis [Fatal]
  - HIV-associated neurocognitive disorder [Fatal]
  - Blindness [Fatal]
  - Dysphagia [Fatal]
  - Brain oedema [Fatal]
  - Dysarthria [Fatal]
  - Clostridium difficile infection [Fatal]
  - Hypoxia [Fatal]
  - Paraesthesia [Fatal]
  - Oesophageal ulcer [Fatal]
  - Muscular weakness [Fatal]
  - Immune reconstitution inflammatory syndrome [Fatal]
  - Ataxia [Fatal]
